FAERS Safety Report 20621336 (Version 9)
Quarter: 2022Q4

REPORT INFORMATION
  Report Type: Spontaneous
  Country: US (occurrence: US)
  Receive Date: 20220322
  Receipt Date: 20221229
  Transmission Date: 20230112
  Serious: No
  Sender: FDA-Public Use
  Company Number: US-PFIZER INC-202200397533

PATIENT
  Age: 67 Year
  Sex: Female

DRUGS (2)
  1. ESTRING [Suspect]
     Active Substance: ESTRADIOL
     Dosage: 7.5 MCG/24 HOUR
     Route: 067
  2. PREMARIN [Suspect]
     Active Substance: ESTROGENS, CONJUGATED
     Dosage: 0.5 G, USE QHS X 2 WEEKS THEN 1-2 TIMES WEEKLY
     Route: 067

REACTIONS (6)
  - Drug ineffective [Unknown]
  - Product dispensing error [Unknown]
  - Cognitive disorder [Unknown]
  - Acne [Unknown]
  - Urinary tract disorder [Unknown]
  - Vulvovaginal dryness [Unknown]
